FAERS Safety Report 4892385-7 (Version None)
Quarter: 2006Q1

REPORT INFORMATION
  Report Type: 
  Country: None (occurrence: None)
  Receive Date: 20060123
  Receipt Date: 20060123
  Transmission Date: 20060701
  Serious: Yes (Hospitalization)
  Sender: FDA-Public Use
  Company Number: None

PATIENT
  Age: 46 Year
  Sex: Male

DRUGS (3)
  1. TAXOL [Suspect]
     Indication: NEOPLASM MALIGNANT
     Dosage: 30 MG /M2 WEEKLY X 6
     Dates: start: 20051122, end: 20051227
  2. CARBOPLATIN [Suspect]
     Indication: NEOPLASM MALIGNANT
     Dosage: AUC 2 WEEKLY X 6
     Dates: start: 20051122, end: 20051227
  3. CELEBREX [Concomitant]

REACTIONS (2)
  - BLOOD CULTURE POSITIVE [None]
  - PYREXIA [None]
